FAERS Safety Report 5964424-3 (Version None)
Quarter: 2008Q4

REPORT INFORMATION
  Report Type: 
  Country: None (occurrence: None)
  Receive Date: 20081124
  Receipt Date: 20081112
  Transmission Date: 20090506
  Serious: Yes (Death, Other)
  Sender: FDA-Public Use
  Company Number: US-PFIZER INC-2008099005

PATIENT
  Sex: Female

DRUGS (3)
  1. CHANTIX [Suspect]
  2. LYRICA [Suspect]
     Indication: FIBROMYALGIA
  3. ALL OTHER THERAPEUTIC PRODUCTS [Concomitant]
     Indication: FIBROMYALGIA

REACTIONS (2)
  - ACCIDENTAL DEATH [None]
  - DRUG TOXICITY [None]
